FAERS Safety Report 24540446 (Version 1)
Quarter: 2024Q4

REPORT INFORMATION
  Report Type: Spontaneous
  Country: US (occurrence: US)
  Receive Date: 20241023
  Receipt Date: 20241023
  Transmission Date: 20250115
  Serious: No
  Sender: Haleon PLC
  Company Number: US-HALEON-2204082

PATIENT
  Age: 37 Year
  Sex: Female

DRUGS (2)
  1. SENSODYNE [Suspect]
     Active Substance: POTASSIUM NITRATE\SODIUM FLUORIDE
     Indication: Dental cleaning
     Dosage: EXPDATE:20251231
  2. SENSODYNE [Suspect]
     Active Substance: POTASSIUM NITRATE\SODIUM FLUORIDE
     Dosage: EXPDATE:20251231

REACTIONS (7)
  - Gingival discomfort [Not Recovered/Not Resolved]
  - Gingival bleeding [Not Recovered/Not Resolved]
  - Oral mucosal exfoliation [Not Recovered/Not Resolved]
  - Oral contusion [Not Recovered/Not Resolved]
  - Glossodynia [Not Recovered/Not Resolved]
  - Toothache [Not Recovered/Not Resolved]
  - Drug ineffective [Unknown]
